FAERS Safety Report 24389682 (Version 3)
Quarter: 2024Q4

REPORT INFORMATION
  Report Type: Spontaneous
  Country: US (occurrence: US)
  Receive Date: 20241003
  Receipt Date: 20241224
  Transmission Date: 20250114
  Serious: No
  Sender: TAKEDA
  Company Number: US-TAKEDA-2024TUS097217

PATIENT
  Age: 30 Year
  Sex: Male
  Weight: 106 kg

DRUGS (6)
  1. VYVANSE [Suspect]
     Active Substance: LISDEXAMFETAMINE DIMESYLATE
     Indication: Attention deficit hyperactivity disorder
     Dosage: UNK, QD
     Dates: start: 20200706, end: 20231002
  2. VYVANSE [Suspect]
     Active Substance: LISDEXAMFETAMINE DIMESYLATE
     Indication: Binge eating
     Dosage: 60 MILLIGRAM, QD
     Dates: end: 20240922
  3. VYVANSE [Suspect]
     Active Substance: LISDEXAMFETAMINE DIMESYLATE
     Dosage: UNK, QD
     Dates: start: 20231010, end: 20240923
  4. ADDERALL XR [Suspect]
     Active Substance: AMPHETAMINE ASPARTATE\AMPHETAMINE SULFATE\DEXTROAMPHETAMINE SACCHARATE\DEXTROAMPHETAMINE SULFATE
     Indication: Attention deficit hyperactivity disorder
     Dosage: 15 MILLIGRAM, QD
     Dates: start: 20231211, end: 20241024
  5. MYDAYIS [Suspect]
     Active Substance: AMPHETAMINE ASPARTATE\AMPHETAMINE SULFATE\DEXTROAMPHETAMINE SACCHARATE\DEXTROAMPHETAMINE SULFATE
     Indication: Product used for unknown indication
     Dosage: UNK
  6. GUANFACINE [Concomitant]
     Active Substance: GUANFACINE
     Indication: Attention deficit hyperactivity disorder
     Dosage: 3 MILLIGRAM, QD
     Dates: start: 20210728

REACTIONS (13)
  - Dehydration [Recovered/Resolved]
  - Therapeutic product effect decreased [Recovered/Resolved]
  - Product quality issue [Recovered/Resolved]
  - Influenza [Unknown]
  - Frustration tolerance decreased [Recovered/Resolved]
  - Thirst [Unknown]
  - Acne [Unknown]
  - Product availability issue [Unknown]
  - Gastrointestinal disorder [Unknown]
  - Fatigue [Unknown]
  - Anger [Unknown]
  - Depressed mood [Unknown]
  - Depression [Recovered/Resolved]

NARRATIVE: CASE EVENT DATE: 20240801
